FAERS Safety Report 25842204 (Version 1)
Quarter: 2025Q3

REPORT INFORMATION
  Report Type: Spontaneous
  Country: US (occurrence: US)
  Receive Date: 20250924
  Receipt Date: 20250924
  Transmission Date: 20251020
  Serious: Yes (Other)
  Sender: OTSUKA
  Company Number: US-MMM-Otsuka-D61S59OL

PATIENT
  Sex: Female

DRUGS (3)
  1. REXULTI [Suspect]
     Active Substance: BREXPIPRAZOLE
     Indication: Dementia
     Route: 065
  2. REXULTI [Suspect]
     Active Substance: BREXPIPRAZOLE
     Indication: Agitation
     Route: 065
  3. REXULTI [Suspect]
     Active Substance: BREXPIPRAZOLE
     Route: 065

REACTIONS (2)
  - Coma [Not Recovered/Not Resolved]
  - Gait inability [Not Recovered/Not Resolved]
